FAERS Safety Report 20350801 (Version 3)
Quarter: 2022Q1

REPORT INFORMATION
  Report Type: Spontaneous
  Country: AT (occurrence: AT)
  Receive Date: 20220119
  Receipt Date: 20220218
  Transmission Date: 20220424
  Serious: Yes (Hospitalization)
  Sender: FDA-Public Use
  Company Number: AT-BAYER-2022A008541

PATIENT
  Age: 55 Year
  Sex: Female

DRUGS (1)
  1. BETAFERON [Suspect]
     Active Substance: INTERFERON BETA-1B
     Indication: Relapsing-remitting multiple sclerosis
     Dosage: UNK
     Dates: start: 1998

REACTIONS (10)
  - Panniculitis [Recovered/Resolved]
  - C-reactive protein increased [Recovered/Resolved]
  - Injection site cellulitis [None]
  - Injection site atrophy [None]
  - Injection site induration [None]
  - Injection site erythema [None]
  - Injection site pain [None]
  - Body temperature increased [None]
  - Injection site calcification [None]
  - Injection site abscess [None]

NARRATIVE: CASE EVENT DATE: 20210901
